FAERS Safety Report 9902123 (Version 2)
Quarter: 2014Q1

REPORT INFORMATION
  Report Type: Spontaneous
  Country: US (occurrence: US)
  Receive Date: 20140217
  Receipt Date: 20140217
  Transmission Date: 20141002
  Serious: No
  Sender: FDA-Public Use
  Company Number: US-GILEAD-2011-0047479

PATIENT
  Age: 77 Year
  Sex: Female

DRUGS (2)
  1. LETAIRIS [Suspect]
     Indication: PRODUCT USED FOR UNKNOWN INDICATION
     Dosage: 10 MG, UNK
     Route: 048
     Dates: start: 20110421, end: 20111201
  2. ADCIRCA [Suspect]

REACTIONS (12)
  - Body temperature increased [Unknown]
  - Vision blurred [Unknown]
  - Confusional state [Unknown]
  - Dysarthria [Unknown]
  - Dyskinesia [Unknown]
  - Pain in extremity [Unknown]
  - Somnolence [Unknown]
  - Lethargy [Unknown]
  - Foot fracture [Unknown]
  - Headache [Unknown]
  - Nausea [Unknown]
  - Local swelling [Unknown]
